FAERS Safety Report 4903142-7 (Version None)
Quarter: 2006Q2

REPORT INFORMATION
  Report Type: 
  Country: None (occurrence: None)
  Receive Date: 20060113
  Receipt Date: 20050121
  Transmission Date: 20061013
  Serious: Yes (Other)
  Sender: FDA-Public Use
  Company Number: HQWYE208917JUL04

PATIENT
  Age: 57 Year
  Sex: Female
  Weight: 876.22 kg

DRUGS (12)
  1. PREMPRO [Suspect]
     Indication: HORMONE REPLACEMENT THERAPY
     Dosage: 0.625/2.5MG DAILY,
     Dates: start: 19950616
  2. PREMPRO [Suspect]
     Indication: MENOPAUSE
     Dosage: 0.625/2.5MG DAILY,
     Dates: start: 19950616
  3. ASPIRIN [Concomitant]
  4. LOPRESSOR [Concomitant]
  5. LIPITOR [Concomitant]
  6. LIPITOR [Concomitant]
  7. MAXZIDE [Concomitant]
  8. CAPOTEN [Concomitant]
  9. XANAX [Concomitant]
  10. AVAPRO [Concomitant]
  11. NEXIUM [Concomitant]
  12. XALATAN [Concomitant]

REACTIONS (1)
  - BREAST CANCER [None]
